FAERS Safety Report 26014737 (Version 1)
Quarter: 2025Q4

REPORT INFORMATION
  Report Type: Spontaneous
  Country: US (occurrence: US)
  Receive Date: 20251108
  Receipt Date: 20251108
  Transmission Date: 20260117
  Serious: No
  Sender: JOHNSON AND JOHNSON
  Company Number: US-JNJFOC-20251030033

PATIENT
  Age: 56 Year
  Sex: Female

DRUGS (1)
  1. XARELTO [Suspect]
     Active Substance: RIVAROXABAN
     Indication: Pulmonary embolism
     Route: 048
     Dates: start: 20251021

REACTIONS (11)
  - Cough [Unknown]
  - Back pain [Unknown]
  - Epistaxis [Unknown]
  - Malaise [Unknown]
  - Headache [Unknown]
  - Dizziness [Unknown]
  - Dyspnoea [Unknown]
  - Chest discomfort [Unknown]
  - Quality of life decreased [Unknown]
  - Impaired work ability [Unknown]
  - Impaired driving ability [Unknown]

NARRATIVE: CASE EVENT DATE: 20251001
